FAERS Safety Report 5060462-6 (Version None)
Quarter: 2006Q3

REPORT INFORMATION
  Report Type: 
  Country: None (occurrence: None)
  Receive Date: 20060725
  Receipt Date: 20060717
  Transmission Date: 20061208
  Serious: Yes (Hospitalization, Other)
  Sender: FDA-Public Use
  Company Number: GB-JNJFOC-20060703480

PATIENT
  Sex: Female
  Weight: 73 kg

DRUGS (10)
  1. REMICADE [Suspect]
     Indication: BEHCET'S SYNDROME
     Route: 042
  2. PREDNISOLONE [Concomitant]
     Route: 065
  3. ASPIRIN [Concomitant]
     Route: 065
  4. ATORVASTATIN CALCIUM [Concomitant]
     Route: 065
  5. ESTRADIOL [Concomitant]
     Route: 065
  6. FOLIC ACID [Concomitant]
     Route: 065
  7. LANSAPRAZOLE [Concomitant]
     Route: 065
  8. METHOTREXATE [Concomitant]
     Route: 065
  9. ORAMORPH SR [Concomitant]
     Route: 065
  10. TEMAZEPAM [Concomitant]
     Route: 065

REACTIONS (2)
  - NEPHROLITHIASIS [None]
  - URETHRAL STENOSIS [None]
